FAERS Safety Report 9670126 (Version 2)
Quarter: 2013Q4

REPORT INFORMATION
  Report Type: Spontaneous
  Country: US (occurrence: US)
  Receive Date: 20131105
  Receipt Date: 20131120
  Transmission Date: 20140711
  Serious: No
  Sender: FDA-Public Use
  Company Number: US-PFIZER INC-2013315594

PATIENT
  Age: 51 Year
  Sex: Male
  Weight: 95.2 kg

DRUGS (2)
  1. CHANTIX [Suspect]
     Indication: SMOKING CESSATION THERAPY
     Dosage: 0.5 MG, 1X/DAY
     Route: 048
     Dates: start: 20131101, end: 201311
  2. CHANTIX [Suspect]
     Dosage: 0.5 MG, UNK
     Route: 048
     Dates: start: 201311

REACTIONS (1)
  - Insomnia [Unknown]
